FAERS Safety Report 9110899 (Version 1)
Quarter: 2013Q1

REPORT INFORMATION
  Report Type: Spontaneous
  Country: US (occurrence: US)
  Receive Date: 20130219
  Receipt Date: 20130219
  Transmission Date: 20140127
  Serious: No
  Sender: FDA-Public Use
  Company Number: US-BRISTOL-MYERS SQUIBB COMPANY-16911190

PATIENT
  Age: 65 Year
  Sex: Female
  Weight: 49.89 kg

DRUGS (10)
  1. ORENCIA [Suspect]
     Indication: RHEUMATOID ARTHRITIS
     Dosage: LAST 3RD INF-AUG12(LAST WEEK)
     Route: 042
     Dates: start: 20120722
  2. LEFLUNOMIDE [Concomitant]
  3. TOPROL [Concomitant]
  4. BENAZEPRIL HCL [Concomitant]
  5. POTASSIUM CHLORIDE [Concomitant]
  6. CALCIUM [Concomitant]
  7. MULTIVITAMIN [Concomitant]
  8. FISH OIL [Concomitant]
  9. BIOTIN [Concomitant]
  10. PROBIOTICA [Concomitant]

REACTIONS (1)
  - Drug ineffective [Unknown]
